FAERS Safety Report 9471607 (Version 1)
Quarter: 2013Q3

REPORT INFORMATION
  Report Type: Report from Study
  Country: US (occurrence: US)
  Receive Date: 20130822
  Receipt Date: 20130822
  Transmission Date: 20140515
  Serious: Yes (Other)
  Sender: FDA-Public Use
  Company Number: US-BAXTER-2013BAX033126

PATIENT
  Sex: Female

DRUGS (3)
  1. 5% DEXTROSE INJECTION [Suspect]
     Indication: DEHYDRATION
     Route: 042
  2. 0.9% SODIUM CHLORIDE INJECTION [Suspect]
     Indication: FLUID REPLACEMENT
     Route: 042
  3. BUPIVACAINE [Suspect]
     Indication: ANAESTHESIA
     Dosage: 0.5% OR 0.75%
     Route: 042

REACTIONS (2)
  - Hypotension [Unknown]
  - Exposure during pregnancy [Recovered/Resolved]
